FAERS Safety Report 9452324 (Version 2)
Quarter: 2013Q4

REPORT INFORMATION
  Report Type: Spontaneous
  Country: CA (occurrence: CA)
  Receive Date: 20130812
  Receipt Date: 20131206
  Transmission Date: 20140711
  Serious: Yes (Disabling, Other)
  Sender: FDA-Public Use
  Company Number: CA-ELI_LILLY_AND_COMPANY-CA201308000440

PATIENT
  Age: 31 Year
  Sex: Male
  Weight: 83.9 kg

DRUGS (3)
  1. ZYPREXA [Suspect]
     Indication: INSOMNIA
     Dosage: 10 MG, BID
     Route: 048
     Dates: start: 20120713, end: 201211
  2. CLONAZEPAM [Suspect]
     Indication: ANXIETY
     Dosage: 1 MG, UNKNOWN
     Route: 048
     Dates: start: 2009, end: 2010
  3. HYDROCHLOROTHIAZIDE [Concomitant]

REACTIONS (8)
  - Dissociation [Not Recovered/Not Resolved]
  - Emotional poverty [Not Recovered/Not Resolved]
  - Paraesthesia [Not Recovered/Not Resolved]
  - Thinking abnormal [Not Recovered/Not Resolved]
  - Tinnitus [Not Recovered/Not Resolved]
  - Visual impairment [Not Recovered/Not Resolved]
  - Dizziness [Not Recovered/Not Resolved]
  - Off label use [Unknown]
